FAERS Safety Report 9349213 (Version 2)
Quarter: 2013Q3

REPORT INFORMATION
  Report Type: Spontaneous
  Country: PT (occurrence: PT)
  Receive Date: 20130614
  Receipt Date: 20130730
  Transmission Date: 20140515
  Serious: Yes (Other)
  Sender: FDA-Public Use
  Company Number: PT-ASTELLAS-2013EU004924

PATIENT
  Age: 52 Year
  Sex: Male

DRUGS (5)
  1. ADVAGRAF [Suspect]
     Dosage: 1.5 MG, UID/QD
     Route: 065
     Dates: start: 20110321
  2. MYCOPHENOLATE MOFETIL [Concomitant]
     Dosage: UNK
     Route: 065
  3. ANTITHYMOCYTE IMMUNOGLOBULIN [Concomitant]
     Dosage: UNK
     Route: 065
  4. PREDNISOLON                        /00016201/ [Concomitant]
     Dosage: UNK
     Route: 065
  5. PREDNISOLON                        /00016201/ [Concomitant]
     Dosage: 5 MG, UNKNOWN/D
     Route: 065

REACTIONS (1)
  - Proctitis ulcerative [Recovered/Resolved]
